FAERS Safety Report 9428585 (Version 1)
Quarter: 2013Q3

REPORT INFORMATION
  Report Type: Spontaneous
  Country: US (occurrence: US)
  Receive Date: 20130730
  Receipt Date: 20130730
  Transmission Date: 20140515
  Serious: No
  Sender: FDA-Public Use
  Company Number: US-ABBOTT-13P-163-1034076-00

PATIENT
  Sex: Female
  Weight: 111.23 kg

DRUGS (12)
  1. NIASPAN (COATED) [Suspect]
     Indication: BLOOD CHOLESTEROL ABNORMAL
     Dates: start: 20121114, end: 20121217
  2. NIASPAN (COATED) [Suspect]
     Dates: start: 20121226, end: 20130102
  3. COUMADIN [Concomitant]
     Indication: ATRIAL FIBRILLATION
  4. XANAX [Concomitant]
     Indication: PRODUCT USED FOR UNKNOWN INDICATION
  5. MOBIC [Concomitant]
     Indication: ARTHRITIS
  6. LASIX [Concomitant]
     Indication: CARDIAC FAILURE CONGESTIVE
  7. NEXIUM [Concomitant]
     Indication: PRODUCT USED FOR UNKNOWN INDICATION
  8. PRAVASTATIN [Concomitant]
     Indication: PRODUCT USED FOR UNKNOWN INDICATION
  9. PROZAC [Concomitant]
     Indication: PRODUCT USED FOR UNKNOWN INDICATION
  10. ATARAX [Concomitant]
     Indication: HYPERSENSITIVITY
  11. CALCIUM + VITAMIN D [Concomitant]
     Indication: PRODUCT USED FOR UNKNOWN INDICATION
  12. MVI [Concomitant]
     Indication: PRODUCT USED FOR UNKNOWN INDICATION

REACTIONS (3)
  - Flushing [Not Recovered/Not Resolved]
  - Skin burning sensation [Not Recovered/Not Resolved]
  - Erythema [Not Recovered/Not Resolved]
